FAERS Safety Report 6544600-1 (Version None)
Quarter: 2010Q1

REPORT INFORMATION
  Report Type: 
  Country: None (occurrence: None)
  Receive Date: 20100121
  Receipt Date: 20100108
  Transmission Date: 20100710
  Serious: Yes (Other)
  Sender: FDA-Public Use
  Company Number: PHEH2010US00891

PATIENT
  Sex: Male

DRUGS (8)
  1. TEGRETOL [Suspect]
     Indication: CONVULSION
     Dosage: 200MG, EIGHT TIMES DAILY
     Route: 048
  2. NICOTINE [Suspect]
     Indication: SMOKING CESSATION THERAPY
     Dosage: 21MG, DAILY
     Route: 062
     Dates: start: 20091201, end: 20091201
  3. NICOTINE [Suspect]
     Dosage: 14MG, DAILY
     Route: 062
     Dates: start: 20091201, end: 20091201
  4. CLORAZEPATE DIPOTASSIUM [Suspect]
     Indication: CONVULSION
     Dosage: TWO TABLETS, EVERY MORNING AND EVENING
  5. DIAMOX                                  /NET/ [Suspect]
     Indication: CONVULSION
     Dosage: 1000 MG, QD
  6. GABITRIL [Suspect]
     Indication: CONVULSION
     Dosage: 12 MG, QD
  7. ATIVAN [Suspect]
     Indication: CONVULSION
     Dosage: 1 MG, PRN
  8. PHENERGAN ^AVENTIS PHARMA^ [Suspect]
     Indication: NAUSEA
     Dosage: 25 MG, PRN

REACTIONS (4)
  - DIZZINESS [None]
  - NAUSEA [None]
  - PARTIAL SEIZURES [None]
  - SOMNOLENCE [None]
